FAERS Safety Report 23085719 (Version 1)
Quarter: 2023Q4

REPORT INFORMATION
  Report Type: Spontaneous
  Country: US (occurrence: US)
  Receive Date: 20231019
  Receipt Date: 20231019
  Transmission Date: 20240109
  Serious: No
  Sender: FDA-Public Use
  Company Number: US-BRISTOL-MYERS SQUIBB COMPANY-2023-141706

PATIENT
  Age: 75 Year
  Sex: Female

DRUGS (2)
  1. CAMZYOS [Suspect]
     Active Substance: MAVACAMTEN
     Indication: Hypertrophic cardiomyopathy
     Dosage: DOSE : 1 CAPSULE;     FREQ : ONCE DAILY
     Route: 048
  2. RANEXA [Concomitant]
     Active Substance: RANOLAZINE
     Indication: Product used for unknown indication

REACTIONS (2)
  - Decreased appetite [Unknown]
  - Ejection fraction decreased [Unknown]

NARRATIVE: CASE EVENT DATE: 20231006
